FAERS Safety Report 20057597 (Version 2)
Quarter: 2021Q4

REPORT INFORMATION
  Report Type: Report from Study
  Country: EG (occurrence: EG)
  Receive Date: 20211111
  Receipt Date: 20211124
  Transmission Date: 20220303
  Serious: Yes (Other)
  Sender: FDA-Public Use
  Company Number: EG-BAYER-2021A245267

PATIENT

DRUGS (6)
  1. EYLEA [Suspect]
     Active Substance: AFLIBERCEPT
     Indication: Diabetic retinal oedema
     Dosage: FIRST INJECTION, RIGHT EYE
     Dates: start: 20210422
  2. EYLEA [Suspect]
     Active Substance: AFLIBERCEPT
     Indication: Retinal vascular occlusion
     Dosage: SECOND INJECTION, RIGHT EYE
     Dates: start: 20211028
  3. EYLEA [Suspect]
     Active Substance: AFLIBERCEPT
     Dosage: FIRST EYLEA INJECTION TO LEFT EYE
     Dates: start: 20211104
  4. METFORMIN HYDROCHLORIDE\VILDAGLIPTIN [Concomitant]
     Active Substance: METFORMIN HYDROCHLORIDE\VILDAGLIPTIN
     Indication: Diabetes mellitus
     Dosage: 2 DF, QD
     Dates: start: 2020
  5. DAPAGLIFLOZIN [Concomitant]
     Active Substance: DAPAGLIFLOZIN
     Indication: Diabetes mellitus
     Dosage: 1 DF, QD
     Dates: start: 2019
  6. GLUCOPHAGE [Concomitant]
     Active Substance: METFORMIN HYDROCHLORIDE
     Indication: Diabetes mellitus
     Dosage: 2 DF; BEFORE DINNER
     Dates: start: 20211003

REACTIONS (1)
  - Diabetic retinal oedema [Unknown]

NARRATIVE: CASE EVENT DATE: 20211104
